FAERS Safety Report 8156388-1 (Version None)
Quarter: 2012Q1

REPORT INFORMATION
  Report Type: 
  Country: None (occurrence: None)
  Receive Date: 20120103
  Receipt Date: 20111018
  Transmission Date: 20120608
  Serious: No
  Sender: FDA-Public Use
  Company Number: AE-2011-002077

PATIENT
  Age: 51 Year
  Sex: Female

DRUGS (9)
  1. ASPIRIN [Concomitant]
  2. METFORMIN HCL [Concomitant]
  3. VITAMIN B12 [Concomitant]
  4. RIBAVIRIN [Concomitant]
  5. PEGINTERFERON (PEGINTERFERON ALFA-2A) [Concomitant]
  6. PRINZIDE [Concomitant]
  7. INCIVEK [Suspect]
     Dates: start: 20110916
  8. ONGLYZA [Concomitant]
  9. SYNTHROID [Concomitant]

REACTIONS (4)
  - DYSPHAGIA [None]
  - RASH ERYTHEMATOUS [None]
  - SWOLLEN TONGUE [None]
  - DYSPHONIA [None]
